FAERS Safety Report 4923756-8 (Version None)
Quarter: 2006Q1

REPORT INFORMATION
  Report Type: 
  Country: None (occurrence: None)
  Receive Date: 20060227
  Receipt Date: 20060214
  Transmission Date: 20060701
  Serious: Yes (Hospitalization)
  Sender: FDA-Public Use
  Company Number: US-MERCK-0602USA04423

PATIENT
  Age: 69 Year
  Sex: Male

DRUGS (7)
  1. PYRIDOXINE [Concomitant]
     Route: 065
     Dates: start: 20010101
  2. RIFAMPIN [Concomitant]
     Route: 065
     Dates: start: 20010101
  3. VIAGRA [Concomitant]
     Route: 065
     Dates: start: 20020101
  4. GENTAMICIN [Concomitant]
     Route: 065
  5. VIOXX [Suspect]
     Route: 048
     Dates: start: 20020101
  6. COMBIVENT [Concomitant]
     Route: 065
     Dates: start: 20010101
  7. ISONIAZID [Concomitant]
     Route: 065
     Dates: start: 20010101

REACTIONS (3)
  - BRADYCARDIA [None]
  - CEREBROVASCULAR ACCIDENT [None]
  - ISCHAEMIC CEREBRAL INFARCTION [None]
